FAERS Safety Report 11421635 (Version 1)
Quarter: 2015Q3

REPORT INFORMATION
  Report Type: Spontaneous
  Country: CA (occurrence: CA)
  Receive Date: 20150827
  Receipt Date: 20150827
  Transmission Date: 20151125
  Serious: Yes (Other)
  Sender: FDA-Public Use
  Company Number: CA-HOSPIRA-2979236

PATIENT
  Age: 37 Year
  Sex: Female

DRUGS (2)
  1. ACID CONCENTRATE D12299 [Suspect]
     Active Substance: ACETIC ACID\CALCIUM CHLORIDE\DEXTROSE\MAGNESIUM CHLORIDE\POTASSIUM CHLORIDE\SODIUM CHLORIDE
     Indication: RENAL FAILURE
     Route: 065
  2. SODIUM CHLORIDE. [Suspect]
     Active Substance: SODIUM CHLORIDE
     Indication: RENAL FAILURE
     Route: 065

REACTIONS (3)
  - Thrombosis [Not Recovered/Not Resolved]
  - Pain in extremity [Not Recovered/Not Resolved]
  - Procedural complication [Not Recovered/Not Resolved]
